FAERS Safety Report 15812276 (Version 1)
Quarter: 2019Q1

REPORT INFORMATION
  Report Type: Spontaneous
  Country: US (occurrence: US)
  Receive Date: 20190108
  Receipt Date: 20190108
  Transmission Date: 20190417
  Serious: Yes (Life-Threatening, Hospitalization, Other)
  Sender: FDA-Public Use
  Company Number: None

PATIENT
  Age: 20 Year
  Sex: Male
  Weight: 76.5 kg

DRUGS (1)
  1. DICLAZEPAM [Suspect]
     Active Substance: 2-CHLORODIAZEPAM
     Indication: ANXIETY
     Dosage: ?          QUANTITY:2 MG;?
     Route: 048
     Dates: start: 20181229, end: 20190102

REACTIONS (5)
  - Incoherent [None]
  - Product use in unapproved indication [None]
  - Depressed level of consciousness [None]
  - Withdrawal syndrome [None]
  - Drug half-life increased [None]

NARRATIVE: CASE EVENT DATE: 20181229
